FAERS Safety Report 5043502-X (Version None)
Quarter: 2006Q2

REPORT INFORMATION
  Report Type: 
  Country: None (occurrence: None)
  Receive Date: 20060601
  Receipt Date: 20060116
  Transmission Date: 20061013
  Serious: No
  Sender: FDA-Public Use
  Company Number: 2006PV007108

PATIENT
  Age: 61 Year
  Sex: Female
  Weight: 81.6475 kg

DRUGS (8)
  1. BYETTA [Suspect]
     Indication: DIABETES MELLITUS NON-INSULIN-DEPENDENT
     Dosage: 5 MCG;BID;SC
     Route: 058
     Dates: start: 20060116
  2. METFORMIN [Concomitant]
  3. GLUCOTROL XL [Concomitant]
  4. NEXIUM [Concomitant]
  5. WELLBUTRIN [Concomitant]
  6. CRESTOR [Concomitant]
  7. COZAAR [Concomitant]
  8. CALCIUM GLUCONATE [Concomitant]

REACTIONS (6)
  - ABDOMINAL DISTENSION [None]
  - ANXIETY [None]
  - DECREASED APPETITE [None]
  - DYSPNOEA [None]
  - FEELING JITTERY [None]
  - SENSATION OF FOREIGN BODY [None]
